FAERS Safety Report 10972990 (Version 2)
Quarter: 2015Q2

REPORT INFORMATION
  Report Type: Spontaneous
  Country: US (occurrence: US)
  Receive Date: 20150331
  Receipt Date: 20150525
  Transmission Date: 20150821
  Serious: No
  Sender: FDA-Public Use
  Company Number: US-JNJFOC-20130805626

PATIENT
  Sex: Male
  Weight: 85.73 kg

DRUGS (3)
  1. BENZTROPINE [Concomitant]
     Active Substance: BENZTROPINE
     Indication: PSYCHOTIC DISORDER
     Route: 048
     Dates: start: 2013
  2. RISPERIDONE. [Suspect]
     Active Substance: RISPERIDONE
     Indication: PSYCHOTIC DISORDER
     Route: 048
     Dates: start: 2013, end: 2013
  3. RISPERIDONE. [Suspect]
     Active Substance: RISPERIDONE
     Indication: PSYCHOTIC DISORDER
     Route: 048
     Dates: start: 2013

REACTIONS (9)
  - Insomnia [Recovered/Resolved]
  - Drug dose omission [Recovered/Resolved]
  - Depression [Recovering/Resolving]
  - Vision blurred [Recovering/Resolving]
  - Breast tenderness [Recovering/Resolving]
  - Bone disorder [Recovering/Resolving]
  - Treatment noncompliance [Unknown]
  - Feeling abnormal [Recovered/Resolved]
  - Musculoskeletal stiffness [Recovering/Resolving]

NARRATIVE: CASE EVENT DATE: 2013
